FAERS Safety Report 7908296-6 (Version None)
Quarter: 2011Q4

REPORT INFORMATION
  Report Type: 
  Country: None (occurrence: None)
  Receive Date: 20111111
  Receipt Date: 20111102
  Transmission Date: 20120403
  Serious: No
  Sender: FDA-Public Use
  Company Number: US-BIOGENIDEC-2011BI041541

PATIENT
  Age: 55 Year
  Sex: Female

DRUGS (4)
  1. AVONEX [Suspect]
     Route: 030
     Dates: start: 20110706, end: 20110713
  2. AVONEX [Suspect]
     Indication: MULTIPLE SCLEROSIS
     Route: 030
     Dates: start: 20110720, end: 20111024
  3. AVONEX [Suspect]
     Route: 030
     Dates: start: 20110622, end: 20110629
  4. AVONEX [Suspect]
     Route: 030
     Dates: start: 20110608, end: 20110615

REACTIONS (5)
  - MUSCLE SPASMS [None]
  - HYPOAESTHESIA [None]
  - DYSGRAPHIA [None]
  - FALL [None]
  - ABASIA [None]
